FAERS Safety Report 4361742-X (Version None)
Quarter: 2004Q2

REPORT INFORMATION
  Report Type: 
  Country: None (occurrence: None)
  Receive Date: 20040521
  Receipt Date: 20040304
  Transmission Date: 20050107
  Serious: No
  Sender: FDA-Public Use
  Company Number: US-GLAXOSMITHKLINE-A0501226A

PATIENT
  Age: 51 Year
  Sex: Female

DRUGS (3)
  1. WELLBUTRIN XL [Suspect]
     Indication: DEPRESSION
     Dosage: 150MG PER DAY
     Route: 048
     Dates: start: 20040201
  2. NEURONTIN [Concomitant]
  3. VICODIN [Concomitant]

REACTIONS (3)
  - HEADACHE [None]
  - NECK PAIN [None]
  - TINNITUS [None]
